FAERS Safety Report 7522842-6 (Version None)
Quarter: 2011Q2

REPORT INFORMATION
  Report Type: 
  Country: None (occurrence: None)
  Receive Date: 20110603
  Receipt Date: 20110530
  Transmission Date: 20111010
  Serious: Yes (Death, Other)
  Sender: FDA-Public Use
  Company Number: PHHY2011US47424

PATIENT
  Sex: Female

DRUGS (4)
  1. ERLOTINIB HYDROCHLORIDE [Suspect]
     Dosage: 150 MG, UNK
     Route: 048
  2. CARBOPLATIN [Suspect]
     Indication: OVARIAN CANCER
     Dosage: UNK
     Route: 042
  3. DOCETAXEL [Suspect]
     Indication: OVARIAN CANCER
     Dosage: 75 MG/M2, UNK
     Route: 042
  4. ERLOTINIB HYDROCHLORIDE [Suspect]
     Dosage: 50 MG, UNK
     Route: 048

REACTIONS (3)
  - ANASTOMOTIC LEAK [None]
  - OVARIAN CANCER RECURRENT [None]
  - LARGE INTESTINE PERFORATION [None]
